FAERS Safety Report 6295681-4 (Version None)
Quarter: 2009Q3

REPORT INFORMATION
  Report Type: 
  Country: None (occurrence: None)
  Receive Date: 20090803
  Receipt Date: 20090803
  Transmission Date: 20100115
  Serious: No
  Sender: FDA-Public Use
  Company Number: None

PATIENT
  Age: 65 Year
  Sex: Male

DRUGS (4)
  1. KETOPROFEN [Suspect]
     Dates: start: 20071107, end: 20071206
  2. PRILOSEC [Suspect]
  3. SULFAMETHOXAZOLE AND TRIMETHOPRIM [Suspect]
     Dates: start: 20071109, end: 20071204
  4. MULTI-VITAMIN [Concomitant]

REACTIONS (6)
  - DECREASED APPETITE [None]
  - DYSPEPSIA [None]
  - EPIGASTRIC DISCOMFORT [None]
  - FAECES PALE [None]
  - HEPATITIS CHOLESTATIC [None]
  - SINUSITIS [None]
